FAERS Safety Report 8784781 (Version 1)
Quarter: 2012Q4

REPORT INFORMATION
  Report Type: 
  Country: DE (occurrence: DK)
  Receive Date: 20120914
  Receipt Date: 20120914
  Transmission Date: 20130627
  Serious: Yes (Death)
  Sender: FDA-Public Use
  Company Number: DK-BRISTOL-MYERS SQUIBB COMPANY-16937153

PATIENT
  Age: 78 Year
  Sex: Female

DRUGS (3)
  1. METFORMIN HCL [Suspect]
     Indication: TYPE 2 DIABETES MELLITUS
  2. DIGOXIN [Concomitant]
  3. WARFARIN SODIUM [Concomitant]

REACTIONS (2)
  - Cardiac failure acute [Fatal]
  - Lactic acidosis [Fatal]
